FAERS Safety Report 4634056-8 (Version None)
Quarter: 2005Q2

REPORT INFORMATION
  Report Type: 
  Country: None (occurrence: None)
  Receive Date: 20050407
  Receipt Date: 20050315
  Transmission Date: 20051028
  Serious: Yes (Death, Other)
  Sender: FDA-Public Use
  Company Number: 200510849BBE

PATIENT
  Sex: Male

DRUGS (10)
  1. KOATE [Suspect]
     Indication: HAEMOPHILIA
  2. KONYNE [Suspect]
     Indication: HAEMOPHILIA
  3. FACTOR IX COMPLEX [Suspect]
     Indication: HAEMOPHILIA
  4. ANTIHEMOPHILIC FACTOR (HUMAN) [Suspect]
     Indication: HAEMOPHILIA
  5. FACTOR IX COMPLEX [Suspect]
     Indication: HAEMOPHILIA
  6. ANTIHEMOPHILIC FACTOR (HUMAN) [Suspect]
     Indication: HAEMOPHILIA
  7. FACTOR IX COMPLEX [Suspect]
     Indication: HAEMOPHILIA
  8. ANTIHEMOPHILIC FACTOR (HUMAN) [Suspect]
     Indication: HAEMOPHILIA
  9. FACTOR IX COMPLEX [Suspect]
     Indication: HAEMOPHILIA
  10. . [Concomitant]

REACTIONS (2)
  - HEPATITIS C VIRUS [None]
  - HIV INFECTION [None]
